FAERS Safety Report 14573326 (Version 1)
Quarter: 2018Q1

REPORT INFORMATION
  Report Type: Report from Study
  Country: US (occurrence: US)
  Receive Date: 20180226
  Receipt Date: 20180226
  Transmission Date: 20180509
  Serious: Yes (Hospitalization, Other)
  Sender: FDA-Public Use
  Company Number: US-SHIRE-US201807424

PATIENT
  Sex: Female

DRUGS (1)
  1. GATTEX [Suspect]
     Active Substance: TEDUGLUTIDE\WATER
     Indication: PRODUCT USED FOR UNKNOWN INDICATION
     Dosage: 0.32(UNK)
     Route: 065
     Dates: start: 20150417

REACTIONS (4)
  - Blood magnesium decreased [Recovering/Resolving]
  - Intestinal obstruction [Recovering/Resolving]
  - Blood potassium decreased [Recovering/Resolving]
  - Inappropriate schedule of drug administration [Unknown]
